FAERS Safety Report 4673274-X (Version None)
Quarter: 2005Q2

REPORT INFORMATION
  Report Type: 
  Country: None (occurrence: None)
  Receive Date: 20050523
  Receipt Date: 20050523
  Transmission Date: 20051028
  Serious: Yes (Hospitalization)
  Sender: FDA-Public Use
  Company Number: None

PATIENT
  Age: 74 Year
  Sex: Male
  Weight: 119.8 kg

DRUGS (12)
  1. WARFARIN [Suspect]
  2. POTASSIUM PHOS-NEUTRA [Concomitant]
  3. FUROSEMIDE [Concomitant]
  4. POTASSIUM CHLORIDE [Concomitant]
  5. GATIFLOXACIN [Concomitant]
  6. HYDROCODONE 5MG/APAP [Concomitant]
  7. ACETAMINOPHEN [Concomitant]
  8. ISOSORBIDE [Concomitant]
  9. SERTRALINE HCL [Concomitant]
  10. OMEPRAZOLE [Concomitant]
  11. NORTRIPTYLINE [Concomitant]
  12. CARVEDILOL [Concomitant]

REACTIONS (1)
  - INTERNATIONAL NORMALISED RATIO INCREASED [None]
